FAERS Safety Report 9852130 (Version 1)
Quarter: 2014Q1

REPORT INFORMATION
  Report Type: Spontaneous
  Country: US (occurrence: US)
  Receive Date: 20140129
  Receipt Date: 20140129
  Transmission Date: 20141002
  Serious: Yes (Other)
  Sender: FDA-Public Use
  Company Number: US-BAYER-2014-011087

PATIENT
  Age: 54 Year
  Sex: Male
  Weight: 104 kg

DRUGS (2)
  1. PHILLIPS STOOL SOFTENER BULK DOCUSATE [Suspect]
     Indication: LAXATIVE SUPPORTIVE CARE
     Dosage: 1-2 DF, TID
     Route: 048
     Dates: start: 20131230, end: 20140103
  2. MORPHINE [Concomitant]

REACTIONS (6)
  - Suicidal ideation [Recovered/Resolved]
  - Abdominal pain upper [Recovered/Resolved]
  - Dyspepsia [Recovered/Resolved]
  - Malaise [Recovered/Resolved]
  - Restless legs syndrome [Recovered/Resolved]
  - Extra dose administered [None]
